FAERS Safety Report 20952786 (Version 1)
Quarter: 2022Q2

REPORT INFORMATION
  Report Type: Spontaneous
  Country: US (occurrence: None)
  Receive Date: 20220613
  Receipt Date: 20220613
  Transmission Date: 20220721
  Serious: Yes (Life-Threatening, Hospitalization)
  Sender: FDA-Public Use
  Company Number: None

PATIENT
  Age: 83 Year
  Sex: Female
  Weight: 61.2 kg

DRUGS (1)
  1. BEBTELOVIMAB [Suspect]
     Active Substance: BEBTELOVIMAB
     Indication: COVID-19
     Dosage: OTHER FREQUENCY : ONCE;?
     Route: 042
     Dates: start: 20220526, end: 20220526

REACTIONS (5)
  - Nonspecific reaction [None]
  - Infusion related reaction [None]
  - Malaise [None]
  - Loss of consciousness [None]
  - Arrhythmia [None]

NARRATIVE: CASE EVENT DATE: 20220526
